FAERS Safety Report 13458723 (Version 2)
Quarter: 2017Q3

REPORT INFORMATION
  Report Type: Spontaneous
  Country: US (occurrence: US)
  Receive Date: 20170419
  Receipt Date: 20170929
  Transmission Date: 20171127
  Serious: Yes (Hospitalization)
  Sender: FDA-Public Use
  Company Number: US-TAKEDA-2017MPI003442

PATIENT
  Sex: Female

DRUGS (1)
  1. VELCADE [Suspect]
     Active Substance: BORTEZOMIB
     Indication: PLASMA CELL MYELOMA
     Dosage: UNK
     Route: 058
     Dates: start: 200404, end: 201509

REACTIONS (6)
  - Pneumonia [Unknown]
  - Hypertension [Unknown]
  - Diarrhoea [Unknown]
  - Cataract [Recovered/Resolved]
  - Gastroenteritis viral [Unknown]
  - Migraine [Unknown]
